FAERS Safety Report 10256189 (Version 1)
Quarter: 2014Q2

REPORT INFORMATION
  Report Type: Spontaneous
  Country: CA (occurrence: CA)
  Receive Date: 20140624
  Receipt Date: 20140624
  Transmission Date: 20141212
  Serious: Yes (Other)
  Sender: FDA-Public Use
  Company Number: CA-WATSON-2014-14018

PATIENT
  Age: 40 Year
  Sex: Male

DRUGS (2)
  1. PREDNISONE (UNKNOWN) [Suspect]
     Indication: CROHN^S DISEASE
     Dosage: 15 MG, DAILY
     Route: 048
  2. ADALIMUMAB [Suspect]
     Indication: CROHN^S DISEASE
     Dosage: 40 MG, 2/WEEK
     Route: 058

REACTIONS (1)
  - Herpes zoster meningitis [Recovering/Resolving]
